FAERS Safety Report 15677525 (Version 4)
Quarter: 2019Q1

REPORT INFORMATION
  Report Type: Report from Study
  Country: BR (occurrence: BR)
  Receive Date: 20181130
  Receipt Date: 20190120
  Transmission Date: 20190417
  Serious: Yes (Life-Threatening)
  Sender: FDA-Public Use
  Company Number: PHHY2018BR171042

PATIENT
  Age: 3 Year
  Sex: Female
  Weight: 16 kg

DRUGS (8)
  1. TRILEPTAL [Suspect]
     Active Substance: OXCARBAZEPINE
     Dosage: 6.5 ML, Q12H
     Route: 048
  2. TRILEPTAL [Suspect]
     Active Substance: OXCARBAZEPINE
     Dosage: 7.5 ML, Q12H
     Route: 048
  3. TRILEPTAL [Suspect]
     Active Substance: OXCARBAZEPINE
     Indication: EPILEPSY
     Dosage: 6 ML, Q12H
     Route: 048
     Dates: start: 20171017, end: 20181121
  4. TEGRETOL [Suspect]
     Active Substance: CARBAMAZEPINE
     Indication: EPILEPSY
     Dosage: 2.5 DF, BID (ONE TABLET AND HALF IN THE MORNING AND ONE TABLET AT NIGHT)
     Route: 048
     Dates: start: 20181121
  5. TRILEPTAL [Suspect]
     Active Substance: OXCARBAZEPINE
     Dosage: 12 ML, BID (12 ML IN THE DAY AND 12 ML IN THE NIGHT)
     Route: 048
  6. TRILEPTAL [Suspect]
     Active Substance: OXCARBAZEPINE
     Dosage: 8 ML, Q12H
     Route: 048
  7. TRILEPTAL [Suspect]
     Active Substance: OXCARBAZEPINE
     Dosage: 8.5 ML, Q12H
     Route: 048
  8. TRILEPTAL [Suspect]
     Active Substance: OXCARBAZEPINE
     Dosage: 7 ML, Q12H
     Route: 048

REACTIONS (5)
  - Coma [Unknown]
  - Aggression [Not Recovered/Not Resolved]
  - Wrong technique in product usage process [Unknown]
  - Drug ineffective [Unknown]
  - Epilepsy [Unknown]

NARRATIVE: CASE EVENT DATE: 20171211
